FAERS Safety Report 11093486 (Version 2)
Quarter: 2015Q4

REPORT INFORMATION
  Report Type: Spontaneous
  Country: IT (occurrence: None)
  Receive Date: 20150504
  Receipt Date: 20151006
  Transmission Date: 20160304
  Serious: Yes (Hospitalization)
  Sender: FDA-Public Use
  Company Number: 1504ITA018480

PATIENT
  Age: 47 Year
  Sex: Male

DRUGS (3)
  1. ISOCEF (CEFTIBUTEN) CAPSULE, 400MG [Suspect]
     Active Substance: CEFTIBUTEN
     Indication: EAR INFECTION
     Dosage: 400 MG, CYCILICAL, ORAL
     Route: 048
     Dates: start: 20150403, end: 20150403
  2. DAFLON (DIOSMIN (+) HESPERIDIN) (DIOSMIN, HESPERIDIN) [Concomitant]
  3. OKI (KETOPROFEN LYSINE) GRANULES, 80MG [Suspect]
     Active Substance: KETOPROFEN LYSINE
     Indication: EAR INFECTION
     Dosage: 80 MG, AS NEEDED, ORAL
     Route: 048
     Dates: start: 20150403, end: 20150403

REACTIONS (1)
  - Urticaria [None]

NARRATIVE: CASE EVENT DATE: 20150403
